FAERS Safety Report 16934258 (Version 1)
Quarter: 2019Q4

REPORT INFORMATION
  Report Type: Spontaneous
  Country: US (occurrence: US)
  Receive Date: 20191017
  Receipt Date: 20191017
  Transmission Date: 20200122
  Serious: Yes (Other)
  Sender: FDA-Public Use
  Company Number: None

PATIENT
  Age: 71 Year
  Sex: Female
  Weight: 88.65 kg

DRUGS (9)
  1. CALCIUM [Concomitant]
     Active Substance: CALCIUM
  2. VITAMIN D3 [Concomitant]
     Active Substance: CHOLECALCIFEROL
  3. FLAXSEED [Concomitant]
     Active Substance: FLAX SEED
  4. OLIVE LEAF [Concomitant]
  5. VITAMIN C [Concomitant]
     Active Substance: ASCORBIC ACID
  6. VITAMIN E [Concomitant]
     Active Substance: .ALPHA.-TOCOPHEROL
  7. HYDROCLORIC [Concomitant]
  8. GARLIC. [Concomitant]
     Active Substance: GARLIC
  9. LETROZOLE. [Suspect]
     Active Substance: LETROZOLE
     Indication: NEOPLASM MALIGNANT
     Dosage: ?          QUANTITY:1 TABLET(S);?
     Route: 048

REACTIONS (9)
  - Blood pressure increased [None]
  - Arthritis [None]
  - Vascular rupture [None]
  - Insomnia [None]
  - Gait disturbance [None]
  - Heart rate increased [None]
  - Retinal vascular disorder [None]
  - Carpal tunnel syndrome [None]
  - Night sweats [None]

NARRATIVE: CASE EVENT DATE: 20191014
